FAERS Safety Report 23144087 (Version 1)
Quarter: 2023Q4

REPORT INFORMATION
  Report Type: Spontaneous
  Country: KR (occurrence: KR)
  Receive Date: 20231103
  Receipt Date: 20231103
  Transmission Date: 20240110
  Serious: No
  Sender: FDA-Public Use
  Company Number: KR-SCALL-2023-APC-124028

PATIENT
  Age: 71 Year
  Sex: Male

DRUGS (1)
  1. DUTASTERIDE [Suspect]
     Active Substance: DUTASTERIDE
     Indication: Nocturia
     Dosage: 0.5 MG
     Route: 065

REACTIONS (1)
  - Off label use [Unknown]
